FAERS Safety Report 5709135-4 (Version None)
Quarter: 2008Q2

REPORT INFORMATION
  Report Type: 
  Country: None (occurrence: None)
  Receive Date: 20080416
  Receipt Date: 20080416
  Transmission Date: 20081010
  Serious: Yes (Hospitalization)
  Sender: FDA-Public Use
  Company Number: None

PATIENT
  Age: 18 Year
  Sex: Male
  Weight: 72.23 kg

DRUGS (1)
  1. CHLORPHENIRAMINE/DEXTROMETHORPHAN [Suspect]
     Indication: INSOMNIA
     Dates: start: 20080413, end: 20080413

REACTIONS (4)
  - DIZZINESS [None]
  - HEADACHE [None]
  - NYSTAGMUS [None]
  - TACHYCARDIA [None]
